FAERS Safety Report 12337676 (Version 1)
Quarter: 2016Q2

REPORT INFORMATION
  Report Type: Report from Study
  Country: US (occurrence: US)
  Receive Date: 20160505
  Receipt Date: 20160505
  Transmission Date: 20160815
  Serious: Yes (Hospitalization)
  Sender: FDA-Public Use
  Company Number: US-ACTELION-A-NJ2016-133652

PATIENT
  Age: 78 Year
  Sex: Female

DRUGS (31)
  1. ELIQUIS [Concomitant]
     Active Substance: APIXABAN
     Dosage: 5 MG, QD
     Dates: start: 20140114
  2. MACITENTAN [Suspect]
     Active Substance: MACITENTAN
     Indication: PULMONARY ARTERIAL HYPERTENSION
     Dosage: 10 MG, QD
     Route: 048
     Dates: start: 20131214
  3. PROAIR HFA [Concomitant]
     Active Substance: ALBUTEROL SULFATE
     Dosage: 90 %, PRN
     Dates: start: 20090329
  4. GLUCOSAMINE [Concomitant]
     Active Substance: GLUCOSAMINE
     Dosage: 2000 MG, BID
  5. LISINOPRIL. [Concomitant]
     Active Substance: LISINOPRIL
     Dosage: 5 MG, QD
     Dates: start: 20110209
  6. COQ10 [Concomitant]
     Active Substance: UBIDECARENONE
     Dosage: 100 MG, QD
  7. LOPRESSOR [Concomitant]
     Active Substance: METOPROLOL TARTRATE
  8. ACIDOPHILUS [Concomitant]
     Active Substance: LACTOBACILLUS ACIDOPHILUS
     Dosage: UNK, QD
  9. VITAMIN D [Concomitant]
     Active Substance: CHOLECALCIFEROL
     Dosage: 1000 MG, BID
     Dates: start: 20120514
  10. DIFLUCAN [Concomitant]
     Active Substance: FLUCONAZOLE
     Dosage: 150 , QD
     Dates: start: 20150614
  11. CARNITOR [Concomitant]
     Active Substance: LEVOCARNITINE
     Dosage: 330 MG, TID
     Dates: start: 20080221
  12. KEFLEX [Concomitant]
     Active Substance: CEPHALEXIN
     Dosage: 500 MG, PRN
  13. PRAVACHOL [Concomitant]
     Active Substance: PRAVASTATIN SODIUM
     Dosage: 80 MG, QD
     Dates: start: 20160214
  14. MIRAPEX [Concomitant]
     Active Substance: PRAMIPEXOLE DIHYDROCHLORIDE
     Dosage: .5 MG, TID
     Dates: start: 20071008
  15. THALITONE [Concomitant]
     Active Substance: CHLORTHALIDONE
     Dosage: 12.5 MG, QD
     Dates: start: 20130201
  16. CELLCEPT [Concomitant]
     Active Substance: MYCOPHENOLATE MOFETIL\MYCOPHENOLATE MOFETIL HYDROCHLORIDE
     Dosage: 500 MG, TID
     Dates: start: 20090108
  17. LASIX [Concomitant]
     Active Substance: FUROSEMIDE
     Dosage: 40 MG, BID
     Dates: start: 20130109
  18. SYNTHROID [Concomitant]
     Active Substance: LEVOTHYROXINE SODIUM
     Dosage: 0.75 MG, QD
     Dates: start: 20030402
  19. DICLOFENAC [Concomitant]
     Active Substance: DICLOFENAC
     Dosage: 5 %, PRN
     Route: 061
     Dates: start: 20110630
  20. OMEGA 3 [Concomitant]
     Active Substance: OMEGA-3 FATTY ACIDS
     Dosage: 1000 MG, TID
     Dates: start: 20100201
  21. PREDNISONE. [Concomitant]
     Active Substance: PREDNISONE
     Dosage: 20 MG, TID
     Dates: start: 20151224, end: 20160101
  22. LIDODERM [Concomitant]
     Active Substance: LIDOCAINE
     Dosage: 5 %, PRN
     Dates: start: 20090218
  23. TYLENOL EXTRA STRENGTH [Concomitant]
     Active Substance: ACETAMINOPHEN
     Dosage: UNK, TID
  24. SELENIUM [Concomitant]
     Active Substance: SELENIUM
     Dosage: 200 MCG, QD
  25. REVATIO [Suspect]
     Active Substance: SILDENAFIL CITRATE
     Indication: PULMONARY HYPERTENSION
     Dosage: 20 MG, TID
     Route: 065
     Dates: start: 20090428
  26. METOPROLOL TARTRATE. [Suspect]
     Active Substance: METOPROLOL TARTRATE
     Indication: BLOOD PRESSURE ABNORMAL
     Dosage: 25 MG, UNK
     Route: 065
     Dates: start: 20071130
  27. K TAB [Concomitant]
     Dosage: 10 MG, QD
  28. ULTRAM [Concomitant]
     Active Substance: TRAMADOL HYDROCHLORIDE
     Dosage: 50 MG, QID
  29. ZINC [Concomitant]
     Active Substance: ZINC\ZINC CHLORIDE
     Dosage: 50 MG, QD
  30. FOLIC ACID. [Concomitant]
     Active Substance: FOLIC ACID
     Dosage: 400 MG, TID
  31. FLAXSEED [Concomitant]
     Active Substance: FLAX SEED
     Dosage: 1000 MG, QD

REACTIONS (3)
  - Syncope [Unknown]
  - Heart rate irregular [Recovered/Resolved]
  - Dizziness [Unknown]

NARRATIVE: CASE EVENT DATE: 20160217
